FAERS Safety Report 9882600 (Version 3)
Quarter: 2014Q2

REPORT INFORMATION
  Report Type: Spontaneous
  Country: BR (occurrence: BR)
  Receive Date: 20140207
  Receipt Date: 20140616
  Transmission Date: 20141212
  Serious: Yes (Hospitalization, Other)
  Sender: FDA-Public Use
  Company Number: BR-ABBVIE-14P-020-1199214-00

PATIENT
  Age: 6 Year
  Sex: Female
  Weight: 35 kg

DRUGS (6)
  1. KLARICID UD [Suspect]
     Indication: CHRONIC SINUSITIS
     Dates: start: 20130926
  2. KLARICID PEDIATRICO [Suspect]
     Indication: SINUSITIS
     Route: 048
     Dates: start: 20131227, end: 20131230
  3. CORTICOSTEROIDS [Suspect]
     Indication: PRODUCT USED FOR UNKNOWN INDICATION
  4. KOIDE [Concomitant]
     Indication: SINUSITIS
     Route: 048
     Dates: start: 20130926, end: 20130929
  5. PREDSIM [Concomitant]
     Indication: PRODUCT USED FOR UNKNOWN INDICATION
  6. BETAMETHASONE W/DEXCHLORPHENIRAMINE MALEATE [Concomitant]
     Indication: PRODUCT USED FOR UNKNOWN INDICATION

REACTIONS (16)
  - Bronchopneumonia [Recovered/Resolved]
  - Adenoidectomy [Unknown]
  - Sinus antrostomy [Unknown]
  - Abdominal pain [Recovered/Resolved]
  - Bone pain [Recovered/Resolved]
  - Vomiting [Recovered/Resolved]
  - Eye movement disorder [Recovered/Resolved]
  - Vomiting [Recovered/Resolved]
  - Abdominal pain [Recovered/Resolved]
  - Eye movement disorder [Recovered/Resolved]
  - Malaise [Unknown]
  - Sinusitis [Unknown]
  - Cough [Unknown]
  - Eye disorder [Unknown]
  - Cushing^s syndrome [Unknown]
  - Precocious puberty [Unknown]
